FAERS Safety Report 22532140 (Version 1)
Quarter: 2023Q2

REPORT INFORMATION
  Report Type: Spontaneous
  Country: DE (occurrence: DE)
  Receive Date: 20230607
  Receipt Date: 20230607
  Transmission Date: 20230721
  Serious: Yes (Hospitalization)
  Sender: FDA-Public Use
  Company Number: DE-MYLANLABS-2023M1060213

PATIENT
  Sex: Male

DRUGS (12)
  1. DOXORUBICIN [Suspect]
     Active Substance: DOXORUBICIN
     Indication: T-cell lymphoma
     Dosage: UNK, CYCLE, FIRST LINE THERAPY AS PART OF CHOP21 REGIMEN FOR 6 CYCLES
     Route: 065
  2. PREDNISONE [Suspect]
     Active Substance: PREDNISONE
     Indication: T-cell lymphoma
     Dosage: UNK, CYCLE, FIRST LINE THERAPY AS PART OF CHOP21 REGIMEN FOR 6 CYCLES
     Route: 065
  3. CYTARABINE [Suspect]
     Active Substance: CYTARABINE
     Indication: T-cell lymphoma
     Dosage: UNK, CYCLE (SECOND LINE THERAPY WITH 2 CYCLES OF ESHAP REGIMEN)
     Route: 065
  4. CYTARABINE [Suspect]
     Active Substance: CYTARABINE
     Dosage: UNK, CYCLE (2 CYCLES AS A PART OF HD-BEAM THERAPY [SECOND LINE THERAPY])
     Route: 065
  5. CISPLATIN [Suspect]
     Active Substance: CISPLATIN
     Indication: T-cell lymphoma
     Dosage: UNK, CYCLE (SECOND LINE THERAPY WITH 2 CYCLES OF ESHAP REGIMEN)
     Route: 065
  6. CYCLOPHOSPHAMIDE [Suspect]
     Active Substance: CYCLOPHOSPHAMIDE
     Indication: T-cell lymphoma
     Dosage: UNK, CYCLE, FIRST LINE THERAPY AS PART OF CHOP21 REGIMEN FOR 6 CYCLES
     Route: 065
  7. VINCRISTINE [Suspect]
     Active Substance: VINCRISTINE
     Indication: T-cell lymphoma
     Dosage: UNK, CYCLE, FIRST LINE THERAPY AS PART OF CHOP21 REGIMEN FOR 6 CYCLES
     Route: 065
  8. ETOPOSIDE [Suspect]
     Active Substance: ETOPOSIDE
     Indication: T-cell lymphoma
     Dosage: UNK, CYCLE (SECOND LINE THERAPY WITH 2 CYCLES OF ESHAP REGIMEN)
     Route: 065
  9. ETOPOSIDE [Suspect]
     Active Substance: ETOPOSIDE
     Dosage: UNK, CYCLE (2 CYCLES AS A PART OF HD-BEAM THERAPY [SECOND LINE THERAPY])
     Route: 065
  10. METHYLPREDNISOLONE [Suspect]
     Active Substance: METHYLPREDNISOLONE
     Indication: T-cell lymphoma
     Dosage: UNK, CYCLE (SECOND LINE THERAPY WITH 2 CYCLES OF ESHAP REGIMEN)
     Route: 065
  11. CARMUSTINE [Suspect]
     Active Substance: CARMUSTINE
     Indication: T-cell lymphoma
     Dosage: UNK, CYCLE (2 CYCLES AS A PART OF HD-BEAM THERAPY [SECOND LINE THERAPY]- HIGH DOSE)
     Route: 065
  12. MELPHALAN [Suspect]
     Active Substance: MELPHALAN
     Indication: T-cell lymphoma
     Dosage: UNK, CYCLE (2 CYCLES AS A PART OF HD-BEAM THERAPY [SECOND LINE THERAPY])
     Route: 065

REACTIONS (2)
  - Drug ineffective [Unknown]
  - Disease progression [Unknown]
